FAERS Safety Report 4981056-4 (Version None)
Quarter: 2006Q1

REPORT INFORMATION
  Report Type: 
  Country: None (occurrence: None)
  Receive Date: 20060227
  Receipt Date: 20051129
  Transmission Date: 20060701
  Serious: Yes (Hospitalization, Disabling)
  Sender: FDA-Public Use
  Company Number: WAES 0511USA04536

PATIENT
  Age: 51 Year
  Sex: Male

DRUGS (2)
  1. ZOCOR [Suspect]
     Dosage: PO
     Route: 048
     Dates: start: 20041101, end: 20051101
  2. NORVASC [Concomitant]

REACTIONS (1)
  - POLYMYALGIA RHEUMATICA [None]
